FAERS Safety Report 9721458 (Version 1)
Quarter: 2013Q4

REPORT INFORMATION
  Report Type: Spontaneous
  Country: AU (occurrence: AU)
  Receive Date: 20131129
  Receipt Date: 20131129
  Transmission Date: 20140711
  Serious: Yes (Hospitalization)
  Sender: FDA-Public Use
  Company Number: AU-009507513-1311AUS011961

PATIENT
  Age: 69 Year
  Sex: Male
  Weight: 97 kg

DRUGS (1)
  1. JANUMET 50 MG/500 MG [Suspect]
     Dosage: 100 MG, DAILY
     Route: 048
     Dates: start: 20080729, end: 20130814

REACTIONS (1)
  - Pancreatic neuroendocrine tumour [Recovered/Resolved]
